FAERS Safety Report 11658699 (Version 2)
Quarter: 2015Q4

REPORT INFORMATION
  Report Type: Report from Study
  Country: CN (occurrence: CN)
  Receive Date: 20151026
  Receipt Date: 20151028
  Transmission Date: 20160304
  Serious: Yes (Death, Other)
  Sender: FDA-Public Use
  Company Number: PHHY2015CN136293

PATIENT
  Age: 35 Year
  Sex: Male

DRUGS (2)
  1. GLIVEC [Suspect]
     Active Substance: IMATINIB MESYLATE
     Indication: CHRONIC MYELOID LEUKAEMIA
     Dosage: 600 MG, QD
     Route: 065
     Dates: start: 201504, end: 20150930
  2. DASATINIB [Suspect]
     Active Substance: DASATINIB
     Indication: CHRONIC MYELOID LEUKAEMIA
     Dosage: 800 MG, QD
     Route: 065
     Dates: start: 20150930

REACTIONS (5)
  - Chronic myeloid leukaemia transformation [Unknown]
  - Full blood count decreased [Recovering/Resolving]
  - Death [Fatal]
  - Multi-organ failure [Unknown]
  - Pain [Unknown]

NARRATIVE: CASE EVENT DATE: 201505
